FAERS Safety Report 21529240 (Version 1)
Quarter: 2022Q4

REPORT INFORMATION
  Report Type: Spontaneous
  Country: US (occurrence: US)
  Receive Date: 20221031
  Receipt Date: 20221031
  Transmission Date: 20230113
  Serious: No
  Sender: FDA-Public Use
  Company Number: US-TEVA-2022-US-2081450

PATIENT
  Age: 47 Year
  Sex: Female
  Weight: 79.38 kg

DRUGS (2)
  1. NEOMYCIN [Suspect]
     Active Substance: NEOMYCIN
     Indication: Preoperative care
     Dosage: 1500 MILLIGRAM DAILY; 500 MILLIGRAM ,6 TABLETS FOR 2 DAYS
     Route: 065
  2. NEOMYCIN [Suspect]
     Active Substance: NEOMYCIN
     Indication: Postoperative care

REACTIONS (2)
  - Computerised tomogram abnormal [Not Recovered/Not Resolved]
  - Recalled product administered [Unknown]
